FAERS Safety Report 17102668 (Version 1)
Quarter: 2019Q4

REPORT INFORMATION
  Report Type: Spontaneous
  Country: US (occurrence: US)
  Receive Date: 20191106
  Receipt Date: 20191106
  Transmission Date: 20200122
  Serious: No
  Sender: FDA-Public Use
  Company Number: None

PATIENT

DRUGS (2)
  1. CETIRIZINE [Suspect]
     Active Substance: CETIRIZINE HYDROCHLORIDE
  2. SIMVASTATIN. [Suspect]
     Active Substance: SIMVASTATIN

REACTIONS (2)
  - Wrong product stored [None]
  - Product container issue [None]
